FAERS Safety Report 5586914-8 (Version None)
Quarter: 2008Q1

REPORT INFORMATION
  Report Type: 
  Country: None (occurrence: None)
  Receive Date: 20080108
  Receipt Date: 20080108
  Transmission Date: 20080703
  Serious: Yes (Other)
  Sender: FDA-Public Use
  Company Number: None

PATIENT
  Age: 37 Year
  Sex: Female
  Weight: 95.2554 kg

DRUGS (1)
  1. CHANTIX [Suspect]
     Indication: SMOKING CESSATION THERAPY
     Dosage: 1 MG 2X/ DAY PO
     Route: 048

REACTIONS (6)
  - ANXIETY [None]
  - HEADACHE [None]
  - NAUSEA [None]
  - SLEEP DISORDER [None]
  - SOMNOLENCE [None]
  - VOMITING [None]
